FAERS Safety Report 22286419 (Version 3)
Quarter: 2023Q2

REPORT INFORMATION
  Report Type: Spontaneous
  Country: MY (occurrence: MY)
  Receive Date: 20230505
  Receipt Date: 20230517
  Transmission Date: 20230721
  Serious: Yes (Hospitalization, Other)
  Sender: FDA-Public Use
  Company Number: MY-009507513-2304MYS009448

PATIENT

DRUGS (3)
  1. JANUMET XR [Suspect]
     Active Substance: METFORMIN HYDROCHLORIDE\SITAGLIPTIN PHOSPHATE
     Indication: Diabetes mellitus
     Dosage: 1 TABLET (1 DOSAGE FORM), DAILY
     Route: 048
     Dates: start: 20230404, end: 20230409
  2. CEPHALEXIN [Suspect]
     Active Substance: CEPHALEXIN
     Indication: Diabetes mellitus
     Dosage: 3 TABLETS A DAY FOR 5 DAYS
     Dates: start: 202304
  3. CEPHALEXIN [Suspect]
     Active Substance: CEPHALEXIN
     Dosage: 500 MILLIGRAM

REACTIONS (8)
  - Drug-induced liver injury [Unknown]
  - Nephropathy toxic [Unknown]
  - Bladder neoplasm [Unknown]
  - Urine abnormality [Unknown]
  - Blood urine present [Unknown]
  - Drug ineffective [Unknown]
  - Urinary tract infection [Unknown]
  - Incorrect dose administered [Unknown]

NARRATIVE: CASE EVENT DATE: 20230101
